FAERS Safety Report 4521778-2 (Version None)
Quarter: 2004Q4

REPORT INFORMATION
  Report Type: 
  Country: None (occurrence: None)
  Receive Date: 20041206
  Receipt Date: 20041116
  Transmission Date: 20050328
  Serious: Yes (Death, Hospitalization, Other)
  Sender: FDA-Public Use
  Company Number: JP_040603415

PATIENT
  Age: 43 Year
  Sex: Female
  Weight: 65 kg

DRUGS (15)
  1. GEMZAR [Suspect]
     Indication: NON-SMALL CELL LUNG CANCER STAGE IV
     Dosage: 1000 MG/M2 OTHER
     Dates: start: 20040406, end: 20040413
  2. NAVELBINE [Concomitant]
  3. LENDORM [Concomitant]
  4. NITRAZEPAM [Concomitant]
  5. SEROQUEL [Concomitant]
  6. ANAFRANIL [Concomitant]
  7. LUVOX [Concomitant]
  8. VOLTAREN [Concomitant]
  9. MS CONTIN [Concomitant]
  10. GASTER (FAMOTIDINE) [Concomitant]
  11. TICLOPIDINE HCL [Concomitant]
  12. BUFFERIN [Concomitant]
  13. CODEINE PHOSPHATE [Concomitant]
  14. PACLITAXEL [Concomitant]
  15. PARAPLATIN(CARBOPLATIN SANOFI-SYNTHELABO) [Concomitant]

REACTIONS (4)
  - MALIGNANT NEOPLASM PROGRESSION [None]
  - PNEUMONIA [None]
  - PNEUMONITIS [None]
  - PULMONARY EMBOLISM [None]
